FAERS Safety Report 17257385 (Version 9)
Quarter: 2022Q4

REPORT INFORMATION
  Report Type: Spontaneous
  Country: US (occurrence: US)
  Receive Date: 20200110
  Receipt Date: 20221206
  Transmission Date: 20230112
  Serious: No
  Sender: FDA-Public Use
  Company Number: US-PFIZER INC-2020011317

PATIENT
  Age: 69 Year
  Sex: Female
  Weight: 74.8 kg

DRUGS (2)
  1. ESTRING [Suspect]
     Active Substance: ESTRADIOL
     Indication: Atrophic vulvovaginitis
     Dosage: 2 MG, UNK (INSERT 1 RING VAGINALLY EVERY 90 DAYS)
     Route: 067
     Dates: start: 20220126
  2. ESTRING [Suspect]
     Active Substance: ESTRADIOL
     Dosage: 2 MG (INSERT 1 RING VAGINALLY EVERY 90 DAYS)
     Route: 067
     Dates: start: 20221130

REACTIONS (5)
  - Hypoacusis [Unknown]
  - Eustachian tube disorder [Unknown]
  - Tinnitus [Unknown]
  - Viral infection [Not Recovered/Not Resolved]
  - Nasopharyngitis [Recovered/Resolved]
